FAERS Safety Report 7476472-5 (Version None)
Quarter: 2011Q2

REPORT INFORMATION
  Report Type: 
  Country: None (occurrence: None)
  Receive Date: 20110510
  Receipt Date: 20110510
  Transmission Date: 20111010
  Serious: Yes (Hospitalization)
  Sender: FDA-Public Use
  Company Number: None

PATIENT
  Age: 59 Year
  Sex: Male
  Weight: 27.3 kg

DRUGS (2)
  1. MOXIFLOXACIN [Suspect]
     Indication: PNEUMONIA
     Dosage: 400 MG EVERY DAY PO
     Route: 048
     Dates: start: 20110308, end: 20110308
  2. MOXIFLOXACIN [Suspect]
     Indication: UPPER RESPIRATORY TRACT INFECTION
     Dosage: 400 MG EVERY DAY PO
     Route: 048
     Dates: start: 20110308, end: 20110308

REACTIONS (3)
  - DECREASED APPETITE [None]
  - LETHARGY [None]
  - CLOSTRIDIUM TEST POSITIVE [None]
